FAERS Safety Report 5506677-1 (Version None)
Quarter: 2007Q4

REPORT INFORMATION
  Report Type: 
  Country: None (occurrence: None)
  Receive Date: 20071101
  Receipt Date: 20071005
  Transmission Date: 20080405
  Serious: Yes (Other)
  Sender: FDA-Public Use
  Company Number: 60522

PATIENT
  Sex: Female

DRUGS (1)
  1. IBUPROFEN [Suspect]

REACTIONS (3)
  - AUTOIMMUNE THYROIDITIS [None]
  - DISEASE RECURRENCE [None]
  - MENINGITIS [None]
